FAERS Safety Report 6765244-2 (Version None)
Quarter: 2010Q2

REPORT INFORMATION
  Report Type: 
  Country: None (occurrence: None)
  Receive Date: 20100611
  Receipt Date: 20100420
  Transmission Date: 20101027
  Serious: Yes (Other)
  Sender: FDA-Public Use
  Company Number: US-BAYER-200938982NA

PATIENT
  Age: 24 Year
  Sex: Female
  Weight: 113 kg

DRUGS (1)
  1. YASMIN [Suspect]
     Indication: CONTRACEPTION
     Route: 048
     Dates: start: 20030101, end: 20070701

REACTIONS (2)
  - GALLBLADDER DISORDER [None]
  - PAIN [None]
